FAERS Safety Report 7761901-X (Version None)
Quarter: 2011Q3

REPORT INFORMATION
  Report Type: 
  Country: None (occurrence: None)
  Receive Date: 20110919
  Receipt Date: 20110919
  Transmission Date: 20111222
  Serious: Yes (Life-Threatening)
  Sender: FDA-Public Use
  Company Number: None

PATIENT
  Sex: Female
  Weight: 52.3 kg

DRUGS (2)
  1. ZOFRAN [Suspect]
     Indication: NAUSEA
     Dosage: ODANSETRON 8 MG ONCE IV
     Route: 042
  2. ZOFRAN [Suspect]
     Indication: VOMITING
     Dosage: ODANSETRON 8 MG ONCE IV
     Route: 042

REACTIONS (3)
  - TORSADE DE POINTES [None]
  - BLOOD POTASSIUM DECREASED [None]
  - RESUSCITATION [None]
